FAERS Safety Report 15090548 (Version 2)
Quarter: 2018Q3

REPORT INFORMATION
  Report Type: Spontaneous
  Country: US (occurrence: US)
  Receive Date: 20180629
  Receipt Date: 20180718
  Transmission Date: 20181010
  Serious: No
  Sender: FDA-Public Use
  Company Number: US-009507513-1806USA001058

PATIENT
  Age: 22 Year
  Sex: Female
  Weight: 120.64 kg

DRUGS (3)
  1. NEXPLANON [Suspect]
     Active Substance: ETONOGESTREL
     Dosage: 1 IMPLANT (68 MG), LEFT ARM
     Route: 059
     Dates: end: 20180523
  2. NEXPLANON [Suspect]
     Active Substance: ETONOGESTREL
     Indication: CONTRACEPTION
     Dosage: 1 IMPLANT (68 MG) LEFT ARM
     Route: 059
     Dates: start: 20180523, end: 20180531
  3. NEXPLANON [Suspect]
     Active Substance: ETONOGESTREL
     Dosage: 1 IMPLANT (68 MG), RIGHT ARM
     Route: 059
     Dates: start: 20180601

REACTIONS (2)
  - Device expulsion [Recovered/Resolved]
  - Implant site cellulitis [Recovered/Resolved]

NARRATIVE: CASE EVENT DATE: 20180525
